FAERS Safety Report 12773718 (Version 1)
Quarter: 2016Q3

REPORT INFORMATION
  Report Type: Spontaneous
  Country: US (occurrence: US)
  Receive Date: 20160923
  Receipt Date: 20160923
  Transmission Date: 20161109
  Serious: Yes (Other)
  Sender: FDA-Public Use
  Company Number: US-GLENMARK PHARMACEUTICALS INC, USA.-2016GMK023454

PATIENT

DRUGS (2)
  1. VORICONAZOLE. [Suspect]
     Active Substance: VORICONAZOLE
     Indication: MENINGITIS
     Dosage: UNK
     Route: 065
  2. CORTICOSTEROIDS [Concomitant]
     Active Substance: CORTICOSTEROID NOS
     Indication: MENINGITIS
     Dosage: UNK
     Route: 065

REACTIONS (4)
  - Squamous cell carcinoma [Recovered/Resolved]
  - Photosensitivity reaction [Recovered/Resolved]
  - Actinic keratosis [Recovered/Resolved]
  - Product use issue [Unknown]
